FAERS Safety Report 13984692 (Version 1)
Quarter: 2017Q3

REPORT INFORMATION
  Report Type: Spontaneous
  Country: US (occurrence: US)
  Receive Date: 20170918
  Receipt Date: 20170918
  Transmission Date: 20171128
  Serious: Yes (Death, Other)
  Sender: FDA-Public Use
  Company Number: US-IMPAX LABORATORIES, INC-2017-IPXL-02697

PATIENT
  Age: 70 Year
  Sex: Male

DRUGS (4)
  1. EPIRUBICIN HYDROCHLORIDE. [Suspect]
     Active Substance: EPIRUBICIN HYDROCHLORIDE
     Indication: OESOPHAGEAL ADENOCARCINOMA
     Dosage: UNK, FIVE CYCLES
     Route: 065
  2. OXALIPLATIN. [Suspect]
     Active Substance: OXALIPLATIN
     Indication: OESOPHAGEAL ADENOCARCINOMA
     Dosage: UNK, FIVE CYCLES
     Route: 065
  3. EPIRUBICIN HYDROCHLORIDE. [Suspect]
     Active Substance: EPIRUBICIN HYDROCHLORIDE
     Indication: PRODUCT USE IN UNAPPROVED INDICATION
  4. FLUOROURACIL. [Suspect]
     Active Substance: FLUOROURACIL
     Indication: OESOPHAGEAL ADENOCARCINOMA
     Dosage: UNK, FIVE CYCLES
     Route: 065

REACTIONS (3)
  - Oesophageal adenocarcinoma [Fatal]
  - Pulmonary embolism [Unknown]
  - Product use in unapproved indication [Unknown]
